FAERS Safety Report 7511659-4 (Version None)
Quarter: 2011Q2

REPORT INFORMATION
  Report Type: 
  Country: None (occurrence: None)
  Receive Date: 20110531
  Receipt Date: 20110519
  Transmission Date: 20111010
  Serious: Yes (Other)
  Sender: FDA-Public Use
  Company Number: US-JNJFOC-20110509209

PATIENT
  Age: 2 Year
  Sex: Female

DRUGS (1)
  1. METHYL SALICYLATE MENTHOLCAMPHOR ONT [Suspect]
     Indication: ACCIDENTAL DRUG INTAKE BY CHILD
     Dosage: UNKNOWN AMOUNT ONCE
     Route: 061
     Dates: start: 20110519

REACTIONS (3)
  - ACCIDENTAL DRUG INTAKE BY CHILD [None]
  - APPLICATION SITE PAIN [None]
  - APPLICATION SITE VESICLES [None]
